FAERS Safety Report 6101373 (Version 10)
Quarter: 2014Q1

REPORT INFORMATION
  Report Type: Report from Study
  Country: US (occurrence: US)
  Receive Date: 20060808
  Receipt Date: 20140124
  Transmission Date: 20141002
  Serious: Yes (Hospitalization)
  Sender: FDA-Public Use
  Company Number: PHEH2006US09639

PATIENT
  Age: 66 Year
  Sex: Female
  Weight: 80.27 kg

DRUGS (10)
  1. GLEEVEC [Suspect]
     Indication: CHRONIC MYELOID LEUKAEMIA
     Dosage: 400 MG, QD
     Route: 048
     Dates: start: 2005
  2. SYNTHROID [Concomitant]
     Indication: HYPOTHYROIDISM
     Dosage: UNK, UNK
     Route: 048
     Dates: start: 1989, end: 2005
  3. SYNTHROID [Concomitant]
     Dosage: 0.2 MG, QD
     Route: 048
     Dates: start: 2005
  4. METOPROLOL [Concomitant]
     Indication: HYPERTENSION
     Route: 048
     Dates: end: 200601
  5. DIOVAN HCT [Concomitant]
     Indication: HYPERTENSION
     Route: 048
     Dates: start: 200601
  6. COREG [Concomitant]
     Route: 048
  7. NAPROXEN [Concomitant]
     Dosage: 1000 MG, QD
     Route: 048
  8. XANAX [Concomitant]
     Indication: ANXIETY DISORDER
     Route: 048
  9. HYDROXYUREA [Concomitant]
     Indication: CHRONIC MYELOID LEUKAEMIA
     Route: 048
     Dates: start: 200501, end: 200502
  10. NEXIUM [Concomitant]
     Dosage: UNK, UNK
     Route: 048

REACTIONS (29)
  - Respiratory failure [Recovering/Resolving]
  - Loss of consciousness [Recovered/Resolved]
  - Oxygen saturation decreased [Recovered/Resolved]
  - Blood potassium abnormal [Recovering/Resolving]
  - Cardiac failure congestive [Recovering/Resolving]
  - Ventricular dysfunction [Recovering/Resolving]
  - Left ventricular end-diastolic pressure increased [Unknown]
  - Thirst [Recovered/Resolved]
  - Abasia [Recovered/Resolved]
  - Asphyxia [Unknown]
  - Cardiac valve disease [Recovered/Resolved]
  - Hypertension [Recovered/Resolved]
  - Anaemia [Not Recovered/Not Resolved]
  - Haemoglobin decreased [Not Recovered/Not Resolved]
  - Haematocrit decreased [Not Recovered/Not Resolved]
  - Stress [Not Recovered/Not Resolved]
  - Blood thyroid stimulating hormone increased [Not Recovered/Not Resolved]
  - Temperature intolerance [Not Recovered/Not Resolved]
  - Fatigue [Not Recovered/Not Resolved]
  - Abnormal behaviour [Not Recovered/Not Resolved]
  - Lactose intolerance [Not Recovered/Not Resolved]
  - Diarrhoea [Not Recovered/Not Resolved]
  - Periorbital oedema [Not Recovered/Not Resolved]
  - Musculoskeletal stiffness [Recovering/Resolving]
  - Muscle spasms [Recovering/Resolving]
  - Therapeutic response unexpected [Unknown]
  - Speech disorder [Recovered/Resolved]
  - Costochondritis [Recovering/Resolving]
  - Chest pain [Unknown]
